FAERS Safety Report 14184878 (Version 3)
Quarter: 2018Q1

REPORT INFORMATION
  Report Type: Spontaneous
  Country: US (occurrence: US)
  Receive Date: 20171113
  Receipt Date: 20180103
  Transmission Date: 20180508
  Serious: Yes (Hospitalization)
  Sender: FDA-Public Use
  Company Number: US-ACTELION-A-US2017-162151

PATIENT
  Age: 51 Year
  Sex: Female

DRUGS (2)
  1. OPSUMIT [Suspect]
     Active Substance: MACITENTAN
     Indication: PULMONARY ARTERIAL HYPERTENSION
     Dosage: 10 MG, UNK
     Route: 048
     Dates: start: 20140719
  2. ORENITRAM [Concomitant]
     Active Substance: TREPROSTINIL

REACTIONS (3)
  - Asthma [Unknown]
  - Dyspnoea [Unknown]
  - Respiratory distress [Not Recovered/Not Resolved]
